FAERS Safety Report 7589497 (Version 7)
Quarter: 2013Q2

REPORT INFORMATION
  Report Type: Report from Study
  Country: CA (occurrence: CA)
  Receive Date: 20100916
  Receipt Date: 20130617
  Transmission Date: 20140414
  Serious: Yes (Other)
  Sender: FDA-Public Use
  Company Number: CA-ROCHE-GNE306664

PATIENT
  Age: 50 Year
  Sex: Male

DRUGS (4)
  1. XOLAIR [Suspect]
     Indication: ASTHMA
     Route: 058
     Dates: start: 20080314
  2. XOLAIR [Suspect]
     Route: 058
     Dates: start: 20090408
  3. XOLAIR [Suspect]
     Route: 058
     Dates: start: 20130510
  4. PREDNISONE [Concomitant]
     Indication: PRODUCT USED FOR UNKNOWN INDICATION

REACTIONS (7)
  - Pneumonia [Unknown]
  - Productive cough [Unknown]
  - Dyspnoea [Unknown]
  - Cough [Unknown]
  - Blood pressure increased [Unknown]
  - Blood cortisol increased [Unknown]
  - Condition aggravated [Unknown]
